FAERS Safety Report 10172508 (Version 3)
Quarter: 2021Q2

REPORT INFORMATION
  Report Type: Report from Study
  Country: US (occurrence: US)
  Receive Date: 20140515
  Receipt Date: 20210505
  Transmission Date: 20210716
  Serious: Yes (Other)
  Sender: FDA-Public Use
  Company Number: US-SA-2014SA060808

PATIENT
  Age: 57 Year
  Sex: Female

DRUGS (3)
  1. TERIFLUNOMIDE. [Suspect]
     Active Substance: TERIFLUNOMIDE
     Indication: MULTIPLE SCLEROSIS
     Dosage: 14 MG,QD
     Route: 048
     Dates: start: 201304
  2. TERIFLUNOMIDE. [Suspect]
     Active Substance: TERIFLUNOMIDE
     Dosage: 14 MG,QD
     Route: 048
     Dates: start: 20140404
  3. AMPYRA [Concomitant]
     Active Substance: DALFAMPRIDINE

REACTIONS (11)
  - Optic nerve disorder [Not Recovered/Not Resolved]
  - Arthritis [Recovering/Resolving]
  - Glaucoma [Recovering/Resolving]
  - Hypertension [Recovering/Resolving]
  - Muscular weakness [Unknown]
  - Arthralgia [Recovering/Resolving]
  - Sleep disorder [Recovering/Resolving]
  - Optic neuritis [Recovered/Resolved]
  - Gait disturbance [Recovering/Resolving]
  - Macular degeneration [Recovering/Resolving]
  - Multiple sclerosis [Not Recovered/Not Resolved]

NARRATIVE: CASE EVENT DATE: 20140417
